FAERS Safety Report 4312005-X (Version None)
Quarter: 2004Q1

REPORT INFORMATION
  Report Type: 
  Country: None (occurrence: None)
  Receive Date: 20040305
  Receipt Date: 20031205
  Transmission Date: 20041129
  Serious: No
  Sender: FDA-Public Use
  Company Number: US-GLAXOSMITHKLINE-A0442171A

PATIENT
  Age: 72 Year
  Sex: Female

DRUGS (4)
  1. REQUIP [Suspect]
     Indication: SURGERY
     Dosage: .75MG AT NIGHT
     Route: 048
  2. NEURONTIN [Concomitant]
     Dosage: 100MG PER DAY
     Route: 065
  3. DARVOCET [Concomitant]
     Dosage: 1TAB PER DAY
     Route: 048
  4. MELATONIN [Concomitant]
     Dosage: 1MG PER DAY
     Route: 065

REACTIONS (5)
  - DEPRESSION [None]
  - DYSURIA [None]
  - MICTURITION URGENCY [None]
  - NERVOUSNESS [None]
  - TREMOR [None]
